FAERS Safety Report 17791189 (Version 1)
Quarter: 2020Q2

REPORT INFORMATION
  Report Type: Spontaneous
  Country: US (occurrence: US)
  Receive Date: 20200514
  Receipt Date: 20200514
  Transmission Date: 20200714
  Serious: No
  Sender: FDA-Public Use
  Company Number: US-ELI_LILLY_AND_COMPANY-US202005004308

PATIENT
  Sex: Female

DRUGS (1)
  1. BASAGLAR [Suspect]
     Active Substance: INSULIN GLARGINE
     Indication: DIABETES MELLITUS
     Dosage: 32 U, DAILY (25-32 UNITS AT NIGHT)
     Route: 058
     Dates: start: 2019

REACTIONS (2)
  - Immune system disorder [Recovering/Resolving]
  - Blood glucose increased [Recovering/Resolving]
